FAERS Safety Report 5044994-2 (Version None)
Quarter: 2006Q3

REPORT INFORMATION
  Report Type: 
  Country: None (occurrence: None)
  Receive Date: 20060705
  Receipt Date: 20060612
  Transmission Date: 20061208
  Serious: Yes (Hospitalization, Other)
  Sender: FDA-Public Use
  Company Number: US200606003059

PATIENT
  Age: 52 Year
  Sex: Female

DRUGS (4)
  1. HUMALOG PEN [Suspect]
     Dosage: SEE IMAGE
     Dates: start: 20000101
  2. HUMALOG PEN [Suspect]
  3. HUMALOG PEN [Suspect]
     Dates: end: 20000101
  4. HUMALOG PEN [Concomitant]

REACTIONS (10)
  - ARTERIAL RUPTURE [None]
  - BLOOD GLUCOSE DECREASED [None]
  - CEREBROVASCULAR ACCIDENT [None]
  - DEVICE FAILURE [None]
  - FALL [None]
  - GAIT DISTURBANCE [None]
  - LIMB INJURY [None]
  - PHARMACEUTICAL PRODUCT COMPLAINT [None]
  - UPPER LIMB FRACTURE [None]
  - WRONG TECHNIQUE IN DRUG USAGE PROCESS [None]
